FAERS Safety Report 5478916-7 (Version None)
Quarter: 2007Q4

REPORT INFORMATION
  Report Type: 
  Country: None (occurrence: None)
  Receive Date: 20071002
  Receipt Date: 20070921
  Transmission Date: 20080405
  Serious: Yes (Hospitalization)
  Sender: FDA-Public Use
  Company Number: 2007BI018862

PATIENT
  Age: 57 Year
  Sex: Female

DRUGS (1)
  1. AVONEX [Suspect]
     Indication: MULTIPLE SCLEROSIS
     Dosage: 30 UG;QW;IM
     Route: 030
     Dates: start: 20060501

REACTIONS (6)
  - BLOOD POTASSIUM DECREASED [None]
  - DYSKINESIA [None]
  - HALLUCINATION [None]
  - PALPITATIONS [None]
  - TREMOR [None]
  - URINARY TRACT INFECTION [None]
